FAERS Safety Report 13545595 (Version 1)
Quarter: 2017Q2

REPORT INFORMATION
  Report Type: Spontaneous
  Country: US (occurrence: US)
  Receive Date: 20170515
  Receipt Date: 20170515
  Transmission Date: 20170830
  Serious: No
  Sender: FDA-Public Use
  Company Number: US-PFIZER INC-2017208421

PATIENT
  Age: 81 Year
  Sex: Female
  Weight: 74.55 kg

DRUGS (1)
  1. IBRANCE [Suspect]
     Active Substance: PALBOCICLIB
     Indication: BREAST CANCER METASTATIC
     Dosage: 100 MG, CYCLIC, (D1-21 Q28 DAYS)
     Route: 048
     Dates: start: 20160614

REACTIONS (3)
  - White blood cell count decreased [Unknown]
  - Haemorrhoids [Unknown]
  - Red blood cell count decreased [Unknown]
